FAERS Safety Report 16720787 (Version 1)
Quarter: 2019Q3

REPORT INFORMATION
  Report Type: Spontaneous
  Country: GB (occurrence: GB)
  Receive Date: 20190820
  Receipt Date: 20190820
  Transmission Date: 20191005
  Serious: Yes (Disabling)
  Sender: FDA-Public Use
  Company Number: PHHY2019GB190341

PATIENT
  Age: 52 Year
  Sex: Female

DRUGS (1)
  1. HYRIMOZ [Suspect]
     Active Substance: ADALIMUMAB-ADAZ
     Indication: CROHN^S DISEASE
     Dosage: 40 MG, UNK
     Route: 058
     Dates: start: 20190717, end: 20190720

REACTIONS (8)
  - Chest pain [Recovered/Resolved]
  - Nausea [Recovering/Resolving]
  - Influenza like illness [Recovering/Resolving]
  - Feeling cold [Unknown]
  - Malaise [Unknown]
  - Chills [Recovering/Resolving]
  - Fatigue [Unknown]
  - Pain [Recovering/Resolving]

NARRATIVE: CASE EVENT DATE: 20190717
